FAERS Safety Report 6876007-1 (Version None)
Quarter: 2010Q3

REPORT INFORMATION
  Report Type: 
  Country: None (occurrence: None)
  Receive Date: 20100727
  Receipt Date: 20080213
  Transmission Date: 20110219
  Serious: Yes (Hospitalization, Other)
  Sender: FDA-Public Use
  Company Number: US-PFIZER INC-2006067095

PATIENT
  Sex: Male
  Weight: 74.8 kg

DRUGS (2)
  1. CELEBREX [Suspect]
     Indication: BACK PAIN
     Dosage: ONE TO TWO TIMES PER DAY
     Dates: start: 19990226
  2. VIOXX [Suspect]
     Indication: ILL-DEFINED DISORDER
     Route: 065
     Dates: start: 19991101

REACTIONS (3)
  - ANXIETY [None]
  - MYOCARDIAL INFARCTION [None]
  - SEXUAL DYSFUNCTION [None]
